FAERS Safety Report 7377575-6 (Version None)
Quarter: 2011Q1

REPORT INFORMATION
  Report Type: 
  Country: None (occurrence: None)
  Receive Date: 20110315
  Receipt Date: 20110301
  Transmission Date: 20110831
  Serious: Yes (Other)
  Sender: FDA-Public Use
  Company Number: CIO11004018

PATIENT
  Age: 77 Year
  Sex: Male

DRUGS (2)
  1. VAPORUB, REGULAR SCENT(CAMPHOR 143.07 MG, CEDAR LEAF OIL 20.4 MG, EUCA [Suspect]
     Indication: NASOPHARYNGITIS
     Dosage: INTRANASAL; ORAL
  2. VAPORUB, REGULAR SCENT(CAMPHOR 143.07 MG, CEDAR LEAF OIL 20.4 MG, EUCA [Suspect]
     Indication: NASAL CONGESTION
     Dosage: INTRANASAL; ORAL

REACTIONS (8)
  - DYSARTHRIA [None]
  - DYSGEUSIA [None]
  - INCORRECT ROUTE OF DRUG ADMINISTRATION [None]
  - LOSS OF CONSCIOUSNESS [None]
  - SLEEP APNOEA SYNDROME [None]
  - INCORRECT DRUG ADMINISTRATION DURATION [None]
  - CONVULSION [None]
  - AMNESIA [None]
